FAERS Safety Report 15886622 (Version 1)
Quarter: 2019Q1

REPORT INFORMATION
  Report Type: Spontaneous
  Country: FR (occurrence: FR)
  Receive Date: 20190129
  Receipt Date: 20190129
  Transmission Date: 20190417
  Serious: Yes (Hospitalization)
  Sender: FDA-Public Use
  Company Number: FR-ASTRAZENECA-2019SE15136

PATIENT
  Age: 58 Year
  Sex: Male

DRUGS (1)
  1. BRILIQUE [Suspect]
     Active Substance: TICAGRELOR
     Indication: ACUTE CORONARY SYNDROME
     Route: 048
     Dates: start: 20181123, end: 20181123

REACTIONS (4)
  - Coronary artery restenosis [Recovered/Resolved]
  - Product solubility abnormal [Recovered/Resolved]
  - Therapeutic product ineffective [Recovered/Resolved]
  - Product physical issue [Recovered/Resolved]

NARRATIVE: CASE EVENT DATE: 20181123
